FAERS Safety Report 14090990 (Version 2)
Quarter: 2017Q4

REPORT INFORMATION
  Report Type: Spontaneous
  Country: GB (occurrence: GB)
  Receive Date: 20171016
  Receipt Date: 20171016
  Transmission Date: 20180321
  Serious: Yes (Other)
  Sender: FDA-Public Use
  Company Number: GB-CIPLA LTD.-2017GB17910

PATIENT

DRUGS (3)
  1. CLOZAPINE. [Concomitant]
     Active Substance: CLOZAPINE
     Dosage: UNK
     Route: 065
  2. AMISULPRIDE [Concomitant]
     Active Substance: AMISULPRIDE
     Dosage: UNK
     Route: 065
  3. SERTRALINE [Suspect]
     Active Substance: SERTRALINE HYDROCHLORIDE
     Dosage: 125 MG, UNK
     Route: 048

REACTIONS (4)
  - Confusional state [Unknown]
  - Drug administration error [Unknown]
  - Amnesia [Unknown]
  - Drug dispensing error [Unknown]
